FAERS Safety Report 9786531 (Version 7)
Quarter: 2019Q3

REPORT INFORMATION
  Report Type: Spontaneous
  Country: FR (occurrence: FR)
  Receive Date: 20131227
  Receipt Date: 20190722
  Transmission Date: 20191005
  Serious: Yes (Congenital Anomaly, Other)
  Sender: FDA-Public Use
  Company Number: FR-ABBVIE-11P-056-0726408-00

PATIENT
  Age: 5 Year
  Sex: Male
  Weight: 38 kg

DRUGS (3)
  1. DEPAKINE [Suspect]
     Active Substance: VALPROATE SODIUM
     Indication: EXPOSURE DURING PREGNANCY
  2. DEPAKINE [Suspect]
     Active Substance: VALPROATE SODIUM
     Indication: MATERNAL EXPOSURE TIMING UNSPECIFIED
     Route: 064
     Dates: start: 20010711, end: 20020326
  3. SPECIAFOLDINE [Concomitant]
     Active Substance: FOLIC ACID
     Indication: PRODUCT USED FOR UNKNOWN INDICATION

REACTIONS (33)
  - Autism spectrum disorder [Unknown]
  - Restlessness [Unknown]
  - Hypotonia [Unknown]
  - Congenital genitourinary abnormality [Recovered/Resolved]
  - Visual impairment [Unknown]
  - Tooth disorder [Unknown]
  - Cognitive disorder [Unknown]
  - Congenital oral malformation [Recovered/Resolved with Sequelae]
  - Autism spectrum disorder [Not Recovered/Not Resolved]
  - Ill-defined disorder [Unknown]
  - Double ureter [Not Recovered/Not Resolved]
  - Congenital teratoma [Unknown]
  - Attention deficit/hyperactivity disorder [Unknown]
  - Radius fracture [Unknown]
  - Hypoacusis [Not Recovered/Not Resolved]
  - Speech disorder [Unknown]
  - Osteopenia [Unknown]
  - Drug intolerance [Unknown]
  - Developmental coordination disorder [Not Recovered/Not Resolved]
  - Dyspraxia [Not Recovered/Not Resolved]
  - Otitis media [Unknown]
  - Dysgraphia [Not Recovered/Not Resolved]
  - Cerebral disorder [Unknown]
  - Foetal exposure during pregnancy [Unknown]
  - Psychomotor retardation [Recovered/Resolved with Sequelae]
  - Cryptorchism [Unknown]
  - Dysmorphism [Recovered/Resolved with Sequelae]
  - Dysmorphism [Unknown]
  - Emotional disorder [Unknown]
  - Fatigue [Unknown]
  - CSWS syndrome [Unknown]
  - Pectus excavatum [Unknown]
  - Hypospadias [Recovered/Resolved]

NARRATIVE: CASE EVENT DATE: 2003
